FAERS Safety Report 9637444 (Version 2)
Quarter: 2013Q4

REPORT INFORMATION
  Report Type: Spontaneous
  Country: FR (occurrence: FR)
  Receive Date: 20131022
  Receipt Date: 20131118
  Transmission Date: 20140711
  Serious: Yes (Hospitalization)
  Sender: FDA-Public Use
  Company Number: FR-JNJFOC-20131008832

PATIENT
  Age: 21 Year
  Sex: Female

DRUGS (16)
  1. RISPERDAL [Suspect]
     Indication: PRODUCT USED FOR UNKNOWN INDICATION
     Route: 048
     Dates: start: 20130325, end: 20130714
  2. LOXAPAC [Suspect]
     Indication: PRODUCT USED FOR UNKNOWN INDICATION
     Route: 048
     Dates: start: 20130326, end: 20130914
  3. TERCIAN [Suspect]
     Indication: PRODUCT USED FOR UNKNOWN INDICATION
     Route: 048
     Dates: start: 20130318, end: 20130715
  4. DEROXAT [Suspect]
     Indication: PRODUCT USED FOR UNKNOWN INDICATION
     Route: 048
     Dates: start: 20130318
  5. TRANXENE [Concomitant]
     Route: 065
  6. THIOCOLCHICOSIDE [Concomitant]
     Route: 065
  7. CETIRIZINE [Concomitant]
     Route: 065
  8. DOLIPRANE [Concomitant]
     Route: 065
  9. LYSANXIA [Concomitant]
     Route: 065
  10. MIRTAZAPINE [Concomitant]
     Route: 065
  11. OLANZAPINE [Concomitant]
     Route: 065
  12. ASPEGIC [Concomitant]
     Route: 065
  13. BI-PROFENID [Concomitant]
     Route: 065
  14. CARDENSIEL [Concomitant]
     Route: 065
  15. KARDEGIC [Concomitant]
     Dosage: REINTRODUCTIONN OF KARDEGIC? 160
     Route: 065
     Dates: start: 20130913
  16. KARDEGIC [Concomitant]
     Route: 065
     Dates: end: 20130703

REACTIONS (2)
  - Myocarditis [Not Recovered/Not Resolved]
  - Tachycardia [Unknown]
